FAERS Safety Report 5860924-5 (Version None)
Quarter: 2008Q3

REPORT INFORMATION
  Report Type: 
  Country: None (occurrence: None)
  Receive Date: 20080827
  Receipt Date: 20071221
  Transmission Date: 20090109
  Serious: No
  Sender: FDA-Public Use
  Company Number: US-ABBOTT-08P-163-0432214-00

PATIENT
  Sex: Male
  Weight: 83.536 kg

DRUGS (5)
  1. COATED PDS [Suspect]
     Indication: HIGH DENSITY LIPOPROTEIN DECREASED
     Route: 048
     Dates: start: 20070201, end: 20070401
  2. COATED PDS [Suspect]
     Route: 048
     Dates: start: 20070401, end: 20070601
  3. COATED PDS [Suspect]
     Route: 048
     Dates: start: 20070601
  4. CLOPIDOGREL [Concomitant]
     Indication: ANTICOAGULANT THERAPY
     Route: 048
  5. ACETYLSALICYLIC ACID SRT [Concomitant]
     Indication: ANTICOAGULANT THERAPY
     Route: 048

REACTIONS (4)
  - FEELING ABNORMAL [None]
  - FEELING HOT [None]
  - PRURITUS [None]
  - SKIN IRRITATION [None]
